FAERS Safety Report 8965064 (Version 1)
Quarter: 2012Q4

REPORT INFORMATION
  Report Type: 
  Country: US (occurrence: US)
  Receive Date: 20121213
  Receipt Date: 20121213
  Transmission Date: 20130627
  Serious: Yes (Hospitalization)
  Sender: FDA-Public Use
  Company Number: US-BRISTOL-MYERS SQUIBB COMPANY-16423022

PATIENT
  Age: 60 Year
  Sex: Female
  Weight: 54.42 kg

DRUGS (6)
  1. PRAVACHOL [Suspect]
     Indication: BLOOD TRIGLYCERIDES INCREASED
     Dates: start: 2004
  2. PRAVACHOL [Suspect]
     Indication: BLOOD CHOLESTEROL INCREASED
     Dates: start: 2004
  3. LIPITOR [Suspect]
     Indication: BLOOD TRIGLYCERIDES INCREASED
     Dosage: stopped on 2004
     Route: 048
     Dates: start: 1999
  4. LIPITOR [Suspect]
     Indication: BLOOD CHOLESTEROL INCREASED
     Dosage: stopped on 2004
     Route: 048
     Dates: start: 1999
  5. TOPROL XL [Concomitant]
  6. PREMARIN [Concomitant]

REACTIONS (1)
  - Pancreatitis [Unknown]
